FAERS Safety Report 17338434 (Version 2)
Quarter: 2020Q1

REPORT INFORMATION
  Report Type: Spontaneous
  Country: US (occurrence: US)
  Receive Date: 20200129
  Receipt Date: 20200304
  Transmission Date: 20200409
  Serious: No
  Sender: FDA-Public Use
  Company Number: US-BAYER-2020-015908

PATIENT
  Sex: Female

DRUGS (3)
  1. MIRALAX [Suspect]
     Active Substance: POLYETHYLENE GLYCOL 3350
     Indication: GASTROINTESTINAL DISORDER
     Dosage: UNK
     Dates: start: 2008
  2. MIRALAX [Suspect]
     Active Substance: POLYETHYLENE GLYCOL 3350
     Indication: GASTROINTESTINAL DISORDER
     Dosage: 1 DF
     Route: 048
     Dates: start: 202001, end: 20200115
  3. OXYGEN. [Suspect]
     Active Substance: OXYGEN
     Dosage: UNK

REACTIONS (5)
  - Abdominal discomfort [Unknown]
  - Product odour abnormal [None]
  - Malaise [Unknown]
  - Abdominal distension [Unknown]
  - Product taste abnormal [None]
